FAERS Safety Report 7117947-8 (Version None)
Quarter: 2010Q4

REPORT INFORMATION
  Report Type: 
  Country: None (occurrence: None)
  Receive Date: 20101123
  Receipt Date: 20101110
  Transmission Date: 20110411
  Serious: Yes (Other)
  Sender: FDA-Public Use
  Company Number: PHHY2010US62139

PATIENT
  Sex: Female
  Weight: 111 kg

DRUGS (5)
  1. VIVELLE-DOT [Suspect]
     Indication: HOT FLUSH
     Dosage: 0.05 MG
     Route: 062
     Dates: start: 20100311, end: 20101029
  2. UNIVASC [Concomitant]
     Dosage: 7.5 MG
     Route: 048
  3. PEPCID [Concomitant]
     Dosage: 20 MG
     Route: 048
  4. GLUCOPHAGE [Concomitant]
     Dosage: 1000 MG
     Route: 048
  5. VITAMIN D [Concomitant]

REACTIONS (3)
  - HOT FLUSH [None]
  - VISION BLURRED [None]
  - VISUAL IMPAIRMENT [None]
